FAERS Safety Report 24566243 (Version 1)
Quarter: 2024Q4

REPORT INFORMATION
  Report Type: Spontaneous
  Country: US (occurrence: None)
  Receive Date: 20241029
  Receipt Date: 20241029
  Transmission Date: 20250114
  Serious: Yes (Death, Life-Threatening, Hospitalization)
  Sender: Public
  Company Number: None

PATIENT
  Age: 57 Year
  Sex: Male
  Weight: 135 kg

DRUGS (2)
  1. LISINOPRIL [Suspect]
     Active Substance: LISINOPRIL
     Indication: Hypertension
     Dosage: FREQUENCY : AT BEDTIME;?
     Route: 048
     Dates: end: 20240729
  2. MORPHINE SULFATE [Suspect]
     Active Substance: MORPHINE SULFATE
     Indication: Pain
     Dosage: OTHER FREQUENCY : ONCE;?
     Route: 042
     Dates: start: 20240729, end: 20240729

REACTIONS (9)
  - Angioedema [None]
  - Drug hypersensitivity [None]
  - Angina pectoris [None]
  - Pneumonia aspiration [None]
  - Shock [None]
  - Anaphylactic reaction [None]
  - Sepsis [None]
  - Encephalopathy [None]
  - Acute respiratory failure [None]

NARRATIVE: CASE EVENT DATE: 20240729
